FAERS Safety Report 9440298 (Version 2)
Quarter: 2013Q3

REPORT INFORMATION
  Report Type: Spontaneous
  Country: JP (occurrence: JP)
  Receive Date: 20130805
  Receipt Date: 20130925
  Transmission Date: 20140515
  Serious: Yes (Hospitalization)
  Sender: FDA-Public Use
  Company Number: JP-ELI_LILLY_AND_COMPANY-JP201307010680

PATIENT
  Age: 70 Year
  Sex: Male
  Weight: 78 kg

DRUGS (5)
  1. ALIMTA [Suspect]
     Indication: NON-SMALL CELL LUNG CANCER STAGE IV
     Dosage: UNK
     Route: 042
     Dates: start: 20130328
  2. BLOPRESS [Concomitant]
     Indication: HYPERTENSION
     Dosage: 4 MG, QD
     Route: 048
     Dates: start: 20120328
  3. AMLODIN [Concomitant]
     Indication: HYPERTENSION
     Dosage: 50 MG, QD
     Route: 048
     Dates: start: 20120806
  4. PANVITAN                           /00466101/ [Concomitant]
     Indication: PREMEDICATION
     Dosage: 1 G, QD
     Dates: start: 20130321
  5. FRESMIN S [Concomitant]
     Indication: PREMEDICATION
     Dosage: UNK
     Dates: start: 20130321

REACTIONS (1)
  - Cerebral infarction [Not Recovered/Not Resolved]
